FAERS Safety Report 9832031 (Version 1)
Quarter: 2014Q1

REPORT INFORMATION
  Report Type: Spontaneous
  Country: US (occurrence: US)
  Receive Date: 20140121
  Receipt Date: 20140121
  Transmission Date: 20141002
  Serious: No
  Sender: FDA-Public Use
  Company Number: US-BAYER-2014-010395

PATIENT
  Sex: Female

DRUGS (2)
  1. ALEVE CAPLET [Suspect]
     Dosage: UNK DF, UNK
     Route: 048
  2. CYMBALTA [Concomitant]

REACTIONS (1)
  - Extra dose administered [None]
